FAERS Safety Report 8095438-8 (Version None)
Quarter: 2012Q1

REPORT INFORMATION
  Report Type: 
  Country: None (occurrence: None)
  Receive Date: 20120129
  Receipt Date: 20111228
  Transmission Date: 20120608
  Serious: No
  Sender: FDA-Public Use
  Company Number: US-ABBOTT-11P-163-0887426-00

PATIENT
  Age: 68 Year
  Sex: Female

DRUGS (3)
  1. MULTI-VITAMIN [Concomitant]
     Indication: PRODUCT USED FOR UNKNOWN INDICATION
  2. HUMIRA [Suspect]
     Indication: COLITIS ULCERATIVE
     Dates: start: 20111102
  3. BALSALAZIDE DISODIUM [Concomitant]
     Indication: COLITIS ULCERATIVE

REACTIONS (1)
  - FREQUENT BOWEL MOVEMENTS [None]
